FAERS Safety Report 10051183 (Version 1)
Quarter: 2014Q2

REPORT INFORMATION
  Report Type: Spontaneous
  Country: FR (occurrence: FR)
  Receive Date: 20140401
  Receipt Date: 20140401
  Transmission Date: 20141212
  Serious: Yes (Death)
  Sender: FDA-Public Use
  Company Number: FR-PFIZER INC-2014088081

PATIENT
  Age: 56 Year
  Sex: Female

DRUGS (7)
  1. VFEND [Suspect]
     Indication: BRONCHOPULMONARY ASPERGILLOSIS
     Dosage: UNK
     Route: 042
     Dates: start: 20140308, end: 20140314
  2. CEFTRIAXONE [Concomitant]
     Indication: HYPOXIA
  3. CEFTRIAXONE [Concomitant]
     Indication: INTERSTITIAL LUNG DISEASE
  4. TAVANIC [Concomitant]
     Indication: HYPOXIA
  5. TAVANIC [Concomitant]
     Indication: INTERSTITIAL LUNG DISEASE
  6. TAMIFLU [Concomitant]
     Indication: HYPOXIA
  7. TAMIFLU [Concomitant]
     Indication: INTERSTITIAL LUNG DISEASE

REACTIONS (2)
  - Conduction disorder [Fatal]
  - Cardio-respiratory arrest [Fatal]
